FAERS Safety Report 20370747 (Version 4)
Quarter: 2023Q2

REPORT INFORMATION
  Report Type: Report from Study
  Country: JP (occurrence: JP)
  Receive Date: 20220124
  Receipt Date: 20230418
  Transmission Date: 20230721
  Serious: Yes (Other)
  Sender: FDA-Public Use
  Company Number: JP-VIIV HEALTHCARE LIMITED-JP2020JPN010859

PATIENT

DRUGS (4)
  1. ABACAVIR SULFATE\DOLUTEGRAVIR SODIUM\LAMIVUDINE [Suspect]
     Active Substance: ABACAVIR SULFATE\DOLUTEGRAVIR SODIUM\LAMIVUDINE
     Indication: HIV infection
     Dosage: 1 DF, 1D
     Route: 048
     Dates: start: 20181215, end: 20220213
  2. DOVATO [Suspect]
     Active Substance: DOLUTEGRAVIR SODIUM\LAMIVUDINE
     Indication: HIV infection
     Dosage: 1 DF, 1D
     Dates: start: 20220214
  3. ALLERMIST NASAL SPRAY [Concomitant]
     Indication: Seasonal allergy
     Dosage: UNK
     Dates: start: 20181215, end: 20190501
  4. ALLERMIST NASAL SPRAY [Concomitant]
     Dosage: UNK
     Dates: start: 20201106, end: 20210216

REACTIONS (10)
  - Depressive symptom [Recovering/Resolving]
  - Pruritus [Recovering/Resolving]
  - Social anxiety disorder [Unknown]
  - Influenza [Recovering/Resolving]
  - Blood creatinine increased [Not Recovered/Not Resolved]
  - Syphilis [Recovering/Resolving]
  - Drug eruption [Recovering/Resolving]
  - Insomnia [Not Recovered/Not Resolved]
  - Hyperlipidaemia [Not Recovered/Not Resolved]
  - Gynaecomastia [Not Recovered/Not Resolved]

NARRATIVE: CASE EVENT DATE: 20181215
